FAERS Safety Report 13304449 (Version 1)
Quarter: 2017Q1

REPORT INFORMATION
  Report Type: Spontaneous
  Country: TW (occurrence: TW)
  Receive Date: 20170308
  Receipt Date: 20170308
  Transmission Date: 20170428
  Serious: Yes (Other)
  Sender: FDA-Public Use
  Company Number: TW-ACCORD-048761

PATIENT
  Age: 19 Year
  Sex: Male

DRUGS (2)
  1. CLOZAPINE. [Suspect]
     Active Substance: CLOZAPINE
     Indication: SCHIZOPHRENIA
  2. HALOPERIDOL/HALOPERIDOL DECANOATE/HALOPERIDOL LACTATE [Concomitant]
     Indication: SCHIZOPHRENIA

REACTIONS (1)
  - Urinary retention [Recovered/Resolved]
